FAERS Safety Report 19483041 (Version 1)
Quarter: 2021Q3

REPORT INFORMATION
  Report Type: Spontaneous
  Country: US (occurrence: US)
  Receive Date: 20210701
  Receipt Date: 20210701
  Transmission Date: 20211014
  Serious: Yes (Other)
  Sender: FDA-Public Use
  Company Number: US-MYLANLABS-2021M1038640

PATIENT
  Age: 63 Year
  Sex: Male

DRUGS (1)
  1. ALENDRONATE [Suspect]
     Active Substance: ALENDRONATE SODIUM
     Indication: OSTEOPOROSIS
     Dosage: 70 MILLIGRAM, QW, RECEIVED THERAPY FOR TOTAL OF 3 YEARS AND 5 MONTHS
     Route: 065

REACTIONS (2)
  - Bone marrow oedema [Unknown]
  - Lumbar vertebral fracture [Recovering/Resolving]
